FAERS Safety Report 22597081 (Version 1)
Quarter: 2023Q2

REPORT INFORMATION
  Report Type: Report from Study
  Country: CA (occurrence: CA)
  Receive Date: 20230613
  Receipt Date: 20230613
  Transmission Date: 20230721
  Serious: Yes (Hospitalization)
  Sender: FDA-Public Use
  Company Number: CA-drreddys-CLI/CAN/23/0166569

PATIENT
  Age: 81 Year
  Sex: Female

DRUGS (1)
  1. ZOLEDRONIC ACID [Suspect]
     Active Substance: ZOLEDRONIC ACID
     Indication: Osteoporosis
     Dosage: 5 MG/100 ML
     Dates: start: 20191114

REACTIONS (4)
  - Pneumonia [Recovering/Resolving]
  - Carotid artery disease [Recovering/Resolving]
  - Ulcer [Recovering/Resolving]
  - Cerebrovascular accident [Recovering/Resolving]
